FAERS Safety Report 5934587-4 (Version None)
Quarter: 2008Q4

REPORT INFORMATION
  Report Type: 
  Country: None (occurrence: None)
  Receive Date: 20081029
  Receipt Date: 20081020
  Transmission Date: 20090506
  Serious: Yes (Other)
  Sender: FDA-Public Use
  Company Number: US-JNJCH-2008052557

PATIENT
  Age: 70 Year
  Sex: Female
  Weight: 67.1 kg

DRUGS (2)
  1. VISINE-A [Suspect]
     Indication: EYE PRURITUS
     Dosage: TEXT:ONE DROP (FREQUENCY UNSPECIFIED)
     Route: 047
     Dates: start: 20080919, end: 20081017
  2. XANAX [Concomitant]
     Indication: DRUG USE FOR UNKNOWN INDICATION
     Dosage: TEXT:ONE MG ONCE DAILY
     Route: 065

REACTIONS (1)
  - APPLICATION SITE BURN [None]
